FAERS Safety Report 11995762 (Version 2)
Quarter: 2016Q1

REPORT INFORMATION
  Report Type: Spontaneous
  Country: US (occurrence: US)
  Receive Date: 20160203
  Receipt Date: 20160303
  Transmission Date: 20160526
  Serious: No
  Sender: FDA-Public Use
  Company Number: US-PFIZER INC-2016021835

PATIENT
  Age: 66 Year
  Sex: Male

DRUGS (2)
  1. VIAGRA [Suspect]
     Active Substance: SILDENAFIL CITRATE
     Indication: DIABETES MELLITUS
     Dosage: 50 MG, 1X/DAY (EVERY DAY BY ORAL ROUTE FOR 7 DAYS, ONCE A WEEK)
     Route: 048
  2. CIALIS [Concomitant]
     Active Substance: TADALAFIL

REACTIONS (2)
  - Drug effect incomplete [Unknown]
  - Product use issue [Unknown]
